FAERS Safety Report 12613718 (Version 1)
Quarter: 2016Q3

REPORT INFORMATION
  Report Type: Report from Study
  Country: US (occurrence: US)
  Receive Date: 20160802
  Receipt Date: 20160802
  Transmission Date: 20161109
  Serious: Yes (Other)
  Sender: FDA-Public Use
  Company Number: US-ROCHE-1806578

PATIENT
  Age: 21 Year
  Sex: Male
  Weight: 60.8 kg

DRUGS (2)
  1. VISMODEGIB [Suspect]
     Active Substance: VISMODEGIB
     Indication: MEDULLOBLASTOMA
     Dosage: LAST TREATMENT DATE: 22/JUL/2009.?COURSE 1
     Route: 048
     Dates: start: 20090528
  2. VISMODEGIB [Suspect]
     Active Substance: VISMODEGIB
     Dosage: LAST TREATMENT DATE: 22/JUL/2009.?COURSE 2
     Route: 048
     Dates: start: 20090625

REACTIONS (1)
  - Neutrophil count decreased [Unknown]
